FAERS Safety Report 9145710 (Version 1)
Quarter: 2013Q1

REPORT INFORMATION
  Report Type: Spontaneous
  Country: DE (occurrence: DE)
  Receive Date: 20130307
  Receipt Date: 20130307
  Transmission Date: 20140127
  Serious: Yes (Other)
  Sender: FDA-Public Use
  Company Number: DE-MYLANLABS-2013S1004039

PATIENT
  Age: 0 Year
  Sex: Female
  Weight: 3.8 kg

DRUGS (3)
  1. DOXEPIN [Suspect]
     Dosage: 100 [MG/D ]/ BEGIN OF THERAPY NOT KNOWN, AT LEAST DURING THE 3RD TRIMESTER
     Route: 064
  2. DIAZEPAM [Suspect]
     Dosage: 5 [MG/ALLE 2D ]/ BEGIN OF THERAPY NOT KNOWN, AT LEAST DURING THE 3RD TRIMESTER
     Route: 064
  3. INSULIN [Concomitant]

REACTIONS (5)
  - Exposure during pregnancy [Recovered/Resolved]
  - Bradycardia neonatal [Recovered/Resolved]
  - Apnoea neonatal [Recovered/Resolved]
  - Hypotonia neonatal [Recovered/Resolved]
  - Hypoglycaemia neonatal [Recovered/Resolved]
